FAERS Safety Report 6829832-7 (Version None)
Quarter: 2010Q3

REPORT INFORMATION
  Report Type: 
  Country: None (occurrence: None)
  Receive Date: 20100706
  Receipt Date: 20100625
  Transmission Date: 20110219
  Serious: Yes (Death, Hospitalization)
  Sender: FDA-Public Use
  Company Number: 2010AC000470

PATIENT
  Age: 55 Year
  Sex: Male
  Weight: 115.2136 kg

DRUGS (46)
  1. DIGOXIN [Suspect]
     Indication: CARDIAC FAILURE CONGESTIVE
     Dosage: 0.125 MG; QD; PO
     Route: 048
     Dates: start: 20080812
  2. DIGOXIN [Suspect]
     Dosage: 0.25 MG; QD; PO
     Route: 048
     Dates: end: 20080620
  3. DIGOXIN [Suspect]
     Indication: ATRIAL FIBRILLATION
     Dosage: 0.125 MG; QD; PO
     Route: 048
     Dates: start: 20010921, end: 20090101
  4. AMIODARONE HCL [Concomitant]
  5. AMLODIPINE [Concomitant]
  6. BUPROPION [Concomitant]
  7. CARVEDILOL [Concomitant]
  8. OXYCODONE HCL AND ACETAMINOPHEN [Concomitant]
  9. FLEXERIL [Concomitant]
  10. LASIX [Concomitant]
  11. LISINOPRIL [Concomitant]
  12. MIRAPEX [Concomitant]
  13. POTASSIUM CHLORIDE [Concomitant]
  14. SPIRIVA [Concomitant]
  15. VIAGRA [Concomitant]
  16. WARFARIN SODIUM [Concomitant]
  17. SODIUM [Concomitant]
  18. XANAX [Concomitant]
  19. ZAROXOLYN [Concomitant]
  20. ATACAND [Concomitant]
  21. OXYCODONE HCL AND ACETAMINOPHEN [Concomitant]
  22. PERCOCET [Concomitant]
  23. LIDODERM [Concomitant]
  24. COREG [Concomitant]
  25. PRINIVIL [Concomitant]
  26. MELOXICAM [Concomitant]
  27. FUROSEMIDE [Concomitant]
  28. ALPRAZOLAM [Concomitant]
  29. BUPROPION HCL [Concomitant]
  30. CYCLOBENZAPRINE [Concomitant]
  31. ROBAXIN [Concomitant]
  32. CARTIA XT [Concomitant]
  33. SEREVENT [Concomitant]
  34. RHINOCORT [Concomitant]
  35. WELLBUTRIN [Concomitant]
  36. SOMA [Concomitant]
  37. VIAGRA [Concomitant]
  38. COREG [Concomitant]
  39. ULTRAM [Concomitant]
  40. POTASSIUM IODIDE LIQUID [Concomitant]
  41. LEVITRA [Concomitant]
  42. CARVEDILOL [Concomitant]
  43. OXYCODONE HCL AND ACETAMINOPHEN [Concomitant]
  44. MIRAPEX [Concomitant]
  45. NORVASC [Concomitant]
  46. ALDACTONE [Concomitant]

REACTIONS (59)
  - ABDOMINAL PAIN [None]
  - ACCIDENT [None]
  - ANAEMIA [None]
  - ANXIETY [None]
  - ARTHRALGIA [None]
  - ARTHRITIS [None]
  - ATELECTASIS [None]
  - ATRIAL FIBRILLATION [None]
  - BACK PAIN [None]
  - BUNDLE BRANCH BLOCK LEFT [None]
  - CARDIAC MURMUR [None]
  - CHEST DISCOMFORT [None]
  - CHRONIC OBSTRUCTIVE PULMONARY DISEASE [None]
  - COLD SWEAT [None]
  - CONGESTIVE CARDIOMYOPATHY [None]
  - CONTRAST MEDIA REACTION [None]
  - CORONARY ARTERY DISEASE [None]
  - DEPRESSION [None]
  - DYSPNOEA EXERTIONAL [None]
  - EJECTION FRACTION DECREASED [None]
  - EMOTIONAL DISORDER [None]
  - ENERGY INCREASED [None]
  - EPIDIDYMITIS [None]
  - ERECTILE DYSFUNCTION [None]
  - FATIGUE [None]
  - GOITRE [None]
  - GYNAECOMASTIA [None]
  - HAEMATOCHEZIA [None]
  - HEADACHE [None]
  - HEART RATE IRREGULAR [None]
  - HYPERTENSION [None]
  - INSOMNIA [None]
  - LEFT VENTRICULAR DYSFUNCTION [None]
  - MALAISE [None]
  - MENTAL DISORDER [None]
  - MULTIPLE ALLERGIES [None]
  - MUSCLE SPASMS [None]
  - MUSCULAR WEAKNESS [None]
  - MUSCULOSKELETAL PAIN [None]
  - NEPHROPATHY [None]
  - OBESITY [None]
  - OEDEMA PERIPHERAL [None]
  - OVERDOSE [None]
  - PAIN [None]
  - PAIN IN EXTREMITY [None]
  - PALPITATIONS [None]
  - PLEURAL EFFUSION [None]
  - PRODUCT SIZE ISSUE [None]
  - REFUSAL OF TREATMENT BY PATIENT [None]
  - RENAL FAILURE [None]
  - RHINITIS ALLERGIC [None]
  - SICK SINUS SYNDROME [None]
  - SKIN DISCOLOURATION [None]
  - SUBCUTANEOUS EMPHYSEMA [None]
  - THERAPEUTIC AGENT TOXICITY [None]
  - TREATMENT NONCOMPLIANCE [None]
  - VENTRICULAR TACHYCARDIA [None]
  - VISUAL IMPAIRMENT [None]
  - WEIGHT DECREASED [None]
